FAERS Safety Report 23286635 (Version 1)
Quarter: 2023Q4

REPORT INFORMATION
  Report Type: Spontaneous
  Country: US (occurrence: US)
  Receive Date: 20231212
  Receipt Date: 20231212
  Transmission Date: 20240110
  Serious: No
  Sender: FDA-Public Use
  Company Number: US-SUN PHARMACEUTICAL INDUSTRIES LTD-2023R1-379511

PATIENT
  Sex: Male

DRUGS (1)
  1. CARBIDOPA AND LEVODOPA [Suspect]
     Active Substance: CARBIDOPA\LEVODOPA
     Indication: Product used for unknown indication
     Dosage: UNK (25-100, 2 PILLS FOUR TIMES PER DAY)
     Route: 065

REACTIONS (3)
  - Headache [Recovered/Resolved]
  - Hot flush [Recovered/Resolved]
  - Muscle rigidity [Recovered/Resolved]
